FAERS Safety Report 7659166-2 (Version None)
Quarter: 2011Q3

REPORT INFORMATION
  Report Type: 
  Country: None (occurrence: None)
  Receive Date: 20110805
  Receipt Date: 20110728
  Transmission Date: 20111222
  Serious: Yes (Hospitalization)
  Sender: FDA-Public Use
  Company Number: IT-GLAXOSMITHKLINE-B0737035A

PATIENT
  Sex: Female

DRUGS (1)
  1. CHLORAMBUCIL [Suspect]
     Indication: CHRONIC LYMPHOCYTIC LEUKAEMIA
     Dosage: 28MG EVERY TWO WEEKS
     Route: 048
     Dates: start: 20101020, end: 20101217

REACTIONS (6)
  - MUCOSAL INFLAMMATION [None]
  - BLOOD BICARBONATE INCREASED [None]
  - RENAL FAILURE [None]
  - ASTHENIA [None]
  - DECREASED APPETITE [None]
  - NAUSEA [None]
